FAERS Safety Report 23238953 (Version 1)
Quarter: 2023Q4

REPORT INFORMATION
  Report Type: Spontaneous
  Country: FR (occurrence: FR)
  Receive Date: 20231129
  Receipt Date: 20231129
  Transmission Date: 20240110
  Serious: Yes (Death)
  Sender: FDA-Public Use
  Company Number: FR-JNJFOC-20231171326

PATIENT
  Sex: Male

DRUGS (2)
  1. ERDAFITINIB [Suspect]
     Active Substance: ERDAFITINIB
     Indication: Transitional cell carcinoma
     Dosage: FIRST LINE OF TREATMENT
     Route: 065
     Dates: start: 20230405, end: 20230622
  2. ERDAFITINIB [Suspect]
     Active Substance: ERDAFITINIB
     Dosage: MOST RECENT LINE OF TREATMENT
     Route: 065
     Dates: start: 20230727, end: 20230907

REACTIONS (1)
  - Death [Fatal]
